FAERS Safety Report 10068154 (Version 3)
Quarter: 2014Q2

REPORT INFORMATION
  Report Type: Spontaneous
  Country: US (occurrence: US)
  Receive Date: 20140409
  Receipt Date: 20140513
  Transmission Date: 20141212
  Serious: No
  Sender: FDA-Public Use
  Company Number: US-PFIZER INC-2014072185

PATIENT
  Age: 62 Year
  Sex: Male

DRUGS (8)
  1. VIAGRA [Suspect]
     Indication: ERECTILE DYSFUNCTION
     Dosage: 100 MG, AS NEEDED PRIOR TO RELATIONS
  2. LISINOPRIL [Concomitant]
     Dosage: UNK
  3. ASA [Concomitant]
     Dosage: UNK
  4. METFORMIN [Concomitant]
     Dosage: UNK
  5. MECLIZINE [Concomitant]
     Dosage: UNK
  6. ZETIA [Concomitant]
     Dosage: UNK
  7. TAPENTADOL [Concomitant]
     Dosage: UNK
  8. ATORVASTATIN [Concomitant]

REACTIONS (2)
  - Nasopharyngitis [Unknown]
  - Sinus congestion [Unknown]
